FAERS Safety Report 8493353-9 (Version None)
Quarter: 2012Q3

REPORT INFORMATION
  Report Type: 
  Country: None (occurrence: None)
  Receive Date: 20120706
  Receipt Date: 20120626
  Transmission Date: 20120928
  Serious: Yes (Other)
  Sender: FDA-Public Use
  Company Number: US-ELI_LILLY_AND_COMPANY-US201206009246

PATIENT
  Sex: Female

DRUGS (4)
  1. HUMALOG [Suspect]
     Dosage: UNK, PRN
  2. HUMALOG [Suspect]
     Indication: TYPE 1 DIABETES MELLITUS
     Dosage: UNK, UNKNOWN
  3. LANTUS [Concomitant]
     Indication: TYPE 1 DIABETES MELLITUS
     Dosage: UNK, UNKNOWN
  4. LEVEMIR [Concomitant]
     Indication: TYPE 1 DIABETES MELLITUS
     Dosage: UNK, UNKNOWN

REACTIONS (3)
  - INGROWING NAIL [None]
  - INCORRECT DOSE ADMINISTERED [None]
  - BLOOD GLUCOSE INCREASED [None]
